FAERS Safety Report 13929315 (Version 1)
Quarter: 2017Q3

REPORT INFORMATION
  Report Type: Spontaneous
  Country: FR (occurrence: FR)
  Receive Date: 20170901
  Receipt Date: 20170901
  Transmission Date: 20171127
  Serious: Yes (Hospitalization)
  Sender: FDA-Public Use
  Company Number: FR-009507513-1708FRA012580

PATIENT
  Age: 22 Year
  Sex: Male

DRUGS (13)
  1. TAZOCILLINE [Concomitant]
     Active Substance: PIPERACILLIN SODIUM\TAZOBACTAM SODIUM
     Dosage: UNK
  2. ZOVIRAX [Concomitant]
     Active Substance: ACYCLOVIR
     Dosage: UNK
  3. ZOPHREN (ONDANSETRON) [Concomitant]
     Active Substance: ONDANSETRON
     Dosage: UNK
  4. NOXAFIL [Suspect]
     Active Substance: POSACONAZOLE
     Indication: FUNGAL INFECTION
     Dosage: 300 MG, QD
     Route: 042
     Dates: start: 20170814, end: 20170819
  5. PLITICAN [Concomitant]
     Active Substance: ALIZAPRIDE HYDROCHLORIDE
     Dosage: UNK
  6. PHOCYTAN [Concomitant]
     Active Substance: .ALPHA.-GLUCOSE-1-PHOSPHATE
     Dosage: UNK
  7. JAKAVI [Suspect]
     Active Substance: RUXOLITINIB
     Indication: GRAFT VERSUS HOST DISEASE
     Dosage: 10 MG, BID
     Route: 048
     Dates: start: 20170814, end: 20170819
  8. WELLVONE [Concomitant]
     Active Substance: ATOVAQUONE
     Dosage: UNK
  9. KETAMINE [Concomitant]
     Active Substance: KETAMINE
     Dosage: UNK
  10. OXYNORM [Concomitant]
     Active Substance: OXYCODONE HYDROCHLORIDE
     Dosage: UNK
  11. VANCOMYCIN [Concomitant]
     Active Substance: VANCOMYCIN
     Dosage: UNK
  12. PANTOPRAZOLE [Concomitant]
     Active Substance: PANTOPRAZOLE
     Dosage: UNK
  13. SOLU-MEDROL [Concomitant]
     Active Substance: METHYLPREDNISOLONE SODIUM SUCCINATE
     Dosage: UNK

REACTIONS (3)
  - Jaundice [Recovering/Resolving]
  - Condition aggravated [Recovering/Resolving]
  - Hepatocellular injury [Recovering/Resolving]

NARRATIVE: CASE EVENT DATE: 20170820
